FAERS Safety Report 9918855 (Version 5)
Quarter: 2014Q1

REPORT INFORMATION
  Report Type: Spontaneous
  Country: JP (occurrence: JP)
  Receive Date: 20140224
  Receipt Date: 20140310
  Transmission Date: 20141002
  Serious: Yes (Hospitalization, Other)
  Sender: FDA-Public Use
  Company Number: JP-PFIZER INC-2014023032

PATIENT
  Age: 69 Year
  Sex: Male
  Weight: 74.5 kg

DRUGS (3)
  1. LYRICA [Suspect]
     Indication: PROCEDURAL PAIN
     Dosage: 75 MG, 2X/DAY
     Route: 048
     Dates: start: 201310, end: 20140120
  2. MAINTATE [Suspect]
     Indication: CARDIAC FAILURE
     Dosage: 1.25 MG, 1X/DAY
     Route: 048
  3. HARNAL [Suspect]
     Indication: DYSURIA
     Dosage: 0.2 MG, 1X/DAY
     Route: 048

REACTIONS (7)
  - Off label use [Unknown]
  - Syncope [Recovered/Resolved]
  - Cerebrovascular insufficiency [Unknown]
  - Dehydration [Unknown]
  - Muscle rigidity [Unknown]
  - Blood pressure decreased [Unknown]
  - Syncope [Recovered/Resolved]
